FAERS Safety Report 7950494-X (Version None)
Quarter: 2011Q4

REPORT INFORMATION
  Report Type: 
  Country: None (occurrence: None)
  Receive Date: 20111130
  Receipt Date: 20111117
  Transmission Date: 20120403
  Serious: Yes (Other)
  Sender: FDA-Public Use
  Company Number: US-CELGENEUS-163-FK228-11112546

PATIENT
  Age: 55 Year
  Sex: Male
  Weight: 63.6 kg

DRUGS (2)
  1. ROMIDEPSIN [Suspect]
     Dosage: 10.5 MILLIGRAM
     Route: 041
     Dates: start: 20061027, end: 20061110
  2. ROMIDEPSIN [Suspect]
     Indication: PERIPHERAL T-CELL LYMPHOMA UNSPECIFIED
     Dosage: 14 MILLIGRAM/SQ. METER
     Route: 041
     Dates: start: 20060113

REACTIONS (1)
  - HEPATITIS B [None]
